FAERS Safety Report 7226144-7 (Version None)
Quarter: 2011Q1

REPORT INFORMATION
  Report Type: 
  Country: None (occurrence: None)
  Receive Date: 20110114
  Receipt Date: 20110105
  Transmission Date: 20110831
  Serious: Yes (Hospitalization)
  Sender: FDA-Public Use
  Company Number: US-BIOGENIDEC-2010BI040464

PATIENT
  Sex: Female

DRUGS (19)
  1. NEURONTIN [Concomitant]
  2. ARICEPT [Concomitant]
     Route: 048
  3. ZOLOFT [Concomitant]
  4. AVONEX [Suspect]
     Route: 030
  5. KLOR-CON [Concomitant]
     Route: 048
  6. AMLODIPINE BESYLATE [Concomitant]
     Route: 048
  7. VYTORIN [Concomitant]
     Route: 048
  8. FISH OIL [Concomitant]
  9. TEGRETOL [Concomitant]
  10. MULTI-VITAMINS [Concomitant]
  11. ULTRAM [Concomitant]
  12. SOLU-MEDROL [Concomitant]
     Route: 042
  13. AVONEX [Suspect]
     Indication: MULTIPLE SCLEROSIS
     Route: 030
     Dates: start: 20010426, end: 20031001
  14. TEGRETOL [Concomitant]
     Route: 048
  15. STERAPRED DS 12 DAY [Concomitant]
  16. MICARDIS HCT [Concomitant]
  17. ALEVE [Concomitant]
  18. WELLBUTRIN XL [Concomitant]
  19. ALPRAZOLAM [Concomitant]

REACTIONS (2)
  - MULTIPLE SCLEROSIS RELAPSE [None]
  - TOXICITY TO VARIOUS AGENTS [None]
